FAERS Safety Report 18437707 (Version 1)
Quarter: 2020Q4

REPORT INFORMATION
  Report Type: Spontaneous
  Country: FR (occurrence: FR)
  Receive Date: 20201028
  Receipt Date: 20201028
  Transmission Date: 20210114
  Serious: Yes (Other)
  Sender: FDA-Public Use
  Company Number: FR-ANIPHARMA-2020-FR-000283

PATIENT
  Age: 76 Year
  Sex: Male

DRUGS (5)
  1. ATACAND [Suspect]
     Active Substance: CANDESARTAN CILEXETIL
     Indication: HYPERTENSION
     Dosage: 16 MG BID
     Route: 048
  2. KARDEGIC [Concomitant]
     Active Substance: ASPIRIN DL-LYSINE
     Dosage: 1 DF DAILY
     Route: 065
  3. BRILIQUE [Suspect]
     Active Substance: TICAGRELOR
     Dosage: 90 MG BID
     Route: 048
     Dates: start: 2019, end: 20201018
  4. LASILIX [Concomitant]
     Active Substance: FUROSEMIDE
     Dosage: 1 DF TID
     Route: 065
  5. LOXEN [Concomitant]
     Dosage: 20 MG ONE TABLET IN THE EVENING AND 50 MG AT SLEEP
     Route: 065

REACTIONS (10)
  - Haemorrhage [Unknown]
  - Blood uric acid increased [Unknown]
  - Blood potassium increased [Unknown]
  - Contusion [Unknown]
  - Pruritus [Unknown]
  - Visual impairment [Unknown]
  - Dyspnoea [Recovering/Resolving]
  - Ear haemorrhage [Recovering/Resolving]
  - Insomnia [Recovering/Resolving]
  - Epistaxis [Recovering/Resolving]
